FAERS Safety Report 9530267 (Version 1)
Quarter: 2013Q3

REPORT INFORMATION
  Report Type: Spontaneous
  Country: BR (occurrence: BR)
  Receive Date: 20130917
  Receipt Date: 20130917
  Transmission Date: 20140515
  Serious: Yes (Other)
  Sender: FDA-Public Use
  Company Number: BR-ROCHE-1272405

PATIENT
  Age: 55 Year
  Sex: Female

DRUGS (4)
  1. MABTHERA [Suspect]
     Indication: RHEUMATOID ARTHRITIS
     Route: 065
  2. MABTHERA [Suspect]
     Route: 065
     Dates: start: 201304
  3. INTERFERON ALFA-2A [Suspect]
     Indication: HEPATITIS C
     Route: 065
  4. INTERFERON ALFA-2A [Suspect]
     Route: 065

REACTIONS (2)
  - Lymphocyte count decreased [Unknown]
  - Rheumatoid arthritis [Not Recovered/Not Resolved]
